FAERS Safety Report 8089826-3 (Version None)
Quarter: 2012Q1

REPORT INFORMATION
  Report Type: 
  Country: None (occurrence: None)
  Receive Date: 20120128
  Receipt Date: 20110617
  Transmission Date: 20120608
  Serious: No
  Sender: FDA-Public Use
  Company Number: US-ABBOTT-11P-163-0733725-00

PATIENT
  Sex: Female
  Weight: 79.45 kg

DRUGS (5)
  1. HUMIRA [Suspect]
     Indication: RHEUMATOID ARTHRITIS
     Dates: start: 20110401
  2. CELEBREX [Concomitant]
     Indication: RHEUMATOID ARTHRITIS
  3. UNKNOWN THYROID MEDICATION [Concomitant]
     Indication: HYPOTHYROIDISM
  4. METHOTREXATE [Concomitant]
     Indication: RHEUMATOID ARTHRITIS
     Dates: start: 20110301
  5. FOLIC ACID [Concomitant]
     Indication: VITAMIN SUPPLEMENTATION
     Dates: start: 20110301

REACTIONS (3)
  - INJECTION SITE PAIN [None]
  - RASH [None]
  - HYPERSENSITIVITY [None]
